FAERS Safety Report 8487368-4 (Version None)
Quarter: 2012Q3

REPORT INFORMATION
  Report Type: 
  Country: None (occurrence: None)
  Receive Date: 20120705
  Receipt Date: 20120704
  Transmission Date: 20120928
  Serious: Yes (Hospitalization)
  Sender: FDA-Public Use
  Company Number: FR-VERTEX PHARMACEUTICALS INC.-000000000000000884

PATIENT
  Sex: Male
  Weight: 88 kg

DRUGS (10)
  1. INCIVO [Suspect]
     Indication: HEPATITIS C
     Dosage: DOSAGE FORM: TABLET
     Route: 048
     Dates: start: 20120402
  2. PEGASYS [Concomitant]
     Indication: HEPATITIS C
     Dates: start: 20120402
  3. ATENOLOL [Concomitant]
     Indication: HYPERTENSION
     Dates: start: 20070101
  4. JANUVIA [Concomitant]
     Indication: DIABETES MELLITUS
     Dates: start: 20070101
  5. COPEGUS [Concomitant]
     Dates: start: 20120402, end: 20120430
  6. KARDEGIC [Concomitant]
     Indication: HYPERTENSION
     Dates: start: 20070101
  7. COPEGUS [Concomitant]
     Indication: HEPATITIS C
     Dates: start: 20120501
  8. ENALAPRIL MALEATE [Concomitant]
     Indication: HYPERTENSION
     Dates: start: 20070101
  9. METFORMIN HCL [Concomitant]
     Indication: DIABETES MELLITUS
     Dates: start: 20070101
  10. LERCANIDIPINE [Concomitant]
     Indication: HYPERTENSION
     Dates: start: 20070101

REACTIONS (2)
  - CARDIAC FAILURE [None]
  - OEDEMA [None]
